FAERS Safety Report 8617407 (Version 2)
Quarter: 2014Q1

REPORT INFORMATION
  Report Type: Spontaneous
  Country: US (occurrence: None)
  Receive Date: 20120323
  Receipt Date: 20130305
  Transmission Date: 20141002
  Serious: Yes (Other)
  Sender: FDA-Public Use
  Company Number: 163-21880-11122166

PATIENT
  Age: 60 Year
  Sex: Male
  Weight: 59.42 kg

DRUGS (5)
  1. REVLIMID (LENALIDOMIDE) (25 MILLIGRAM, CAPSULES) [Suspect]
     Indication: PLASMA CELL MYELOMA
     Dosage: 7.1429 MG, 2 IN 1 WK, PO
     Route: 048
     Dates: start: 20100601, end: 2010
  2. WARFARIN (WARFARIN) (UNKNOWN) [Concomitant]
  3. BUPROPION (BUPROPION) (UNKNOWN) (BUPROPION) [Concomitant]
  4. APAP/CODEINE (PANADEINE CO) (UNKNOWN) [Concomitant]
  5. ACYCLOVIR (ACICLOVIR) (UNKNOWN) [Concomitant]

REACTIONS (2)
  - Blood creatinine increased [None]
  - Renal disorder [None]
